FAERS Safety Report 9985562 (Version 1)
Quarter: 2014Q1

REPORT INFORMATION
  Report Type: Spontaneous
  Country: US (occurrence: US)
  Receive Date: 20140307
  Receipt Date: 20140307
  Transmission Date: 20141002
  Serious: No
  Sender: FDA-Public Use
  Company Number: US-GILEAD-2012-0061118

PATIENT
  Age: 20 Year
  Sex: Male

DRUGS (2)
  1. TRUVADA [Suspect]
     Indication: HIV INFECTION
     Dosage: UNK
     Dates: end: 20120909
  2. KALETRA [Concomitant]
     Indication: HIV INFECTION
     Dosage: UNK

REACTIONS (1)
  - Nausea [Unknown]
